FAERS Safety Report 9753206 (Version 2)
Quarter: 2015Q3

REPORT INFORMATION
  Report Type: Spontaneous
  Country: US (occurrence: US)
  Receive Date: 20131213
  Receipt Date: 20150805
  Transmission Date: 20151125
  Serious: No
  Sender: FDA-Public Use
  Company Number: US-GILEAD-2010-0027339

PATIENT
  Age: 82 Year
  Sex: Female
  Weight: 58.97 kg

DRUGS (18)
  1. LEVOTHYROXINE. [Concomitant]
     Active Substance: LEVOTHYROXINE
  2. TYLENOL [Concomitant]
     Active Substance: ACETAMINOPHEN
  3. METAMUCIL [Concomitant]
     Active Substance: PLANTAGO SEED
  4. CENTRUM [Concomitant]
     Active Substance: VITAMINS
  5. LASIX [Concomitant]
     Active Substance: FUROSEMIDE
  6. CALTRATE W/D [Concomitant]
  7. POT CL [Concomitant]
  8. TRICOR [Concomitant]
     Active Substance: FENOFIBRATE
  9. HYDROCODONE BITARTRATE AND ACETAMINOPHEN [Concomitant]
     Active Substance: ACETAMINOPHEN\HYDROCODONE BITARTRATE
  10. ALLOPURINOL. [Concomitant]
     Active Substance: ALLOPURINOL
  11. TRAVATAN [Concomitant]
     Active Substance: TRAVOPROST
  12. OMEPRAZOLE. [Concomitant]
     Active Substance: OMEPRAZOLE
  13. LETAIRIS [Suspect]
     Active Substance: AMBRISENTAN
     Indication: PULMONARY ARTERIAL HYPERTENSION
     Route: 048
     Dates: start: 20090122
  14. NIFEDIPINE. [Concomitant]
     Active Substance: NIFEDIPINE
  15. LORAZEPAM. [Concomitant]
     Active Substance: LORAZEPAM
  16. PREMARIN [Concomitant]
     Active Substance: ESTROGENS, CONJUGATED
  17. LIDODERM [Concomitant]
     Active Substance: LIDOCAINE
  18. AMBIEN [Concomitant]
     Active Substance: ZOLPIDEM TARTRATE

REACTIONS (1)
  - Growth of eyelashes [Unknown]
